FAERS Safety Report 25051734 (Version 1)
Quarter: 2025Q1

REPORT INFORMATION
  Report Type: Spontaneous
  Country: PL (occurrence: PL)
  Receive Date: 20250307
  Receipt Date: 20250307
  Transmission Date: 20250408
  Serious: Yes (Hospitalization)
  Sender: NOVARTIS
  Company Number: PL-002147023-NVSC2025PL037188

PATIENT
  Age: 47 Year
  Sex: Female

DRUGS (2)
  1. IMATINIB [Suspect]
     Active Substance: IMATINIB
     Indication: Indolent systemic mastocytosis
     Dosage: 600 MG, QD (FOR 3?WEEKS)
     Route: 048
  2. IMATINIB [Suspect]
     Active Substance: IMATINIB
     Dosage: 600 MG, QD
     Route: 048

REACTIONS (7)
  - Papular-purpuric gloves-and-socks syndrome [Recovering/Resolving]
  - Rash erythematous [Recovering/Resolving]
  - Rash papular [Recovering/Resolving]
  - Joint swelling [Recovering/Resolving]
  - Throat tightness [Recovering/Resolving]
  - Arthralgia [Recovering/Resolving]
  - Throat irritation [Recovering/Resolving]
